APPROVED DRUG PRODUCT: ACETAZOLAMIDE
Active Ingredient: ACETAZOLAMIDE
Strength: 250MG
Dosage Form/Route: TABLET;ORAL
Application: A211151 | Product #002
Applicant: AJANTA PHARMA LTD
Approved: Sep 11, 2023 | RLD: No | RS: No | Type: DISCN